FAERS Safety Report 8763388 (Version 1)
Quarter: 2012Q4

REPORT INFORMATION
  Report Type: 
  Country: US (occurrence: US)
  Receive Date: 20120830
  Receipt Date: 20120830
  Transmission Date: 20130627
  Serious: Yes (Other)
  Sender: FDA-Public Use
  Company Number: US-BAYER-2012-087829

PATIENT
  Age: 24 Year
  Sex: Female

DRUGS (1)
  1. MIRENA [Suspect]
     Indication: CONTRACEPTION
     Dosage: 20 mcg/24hr, CONT
     Route: 015
     Dates: start: 2010, end: 20120724

REACTIONS (5)
  - Post procedural haemorrhage [Recovered/Resolved]
  - Abdominal pain [None]
  - Hypomenorrhoea [None]
  - Oligomenorrhoea [None]
  - Abdominal pain [None]
